FAERS Safety Report 7414902-5 (Version None)
Quarter: 2011Q2

REPORT INFORMATION
  Report Type: 
  Country: None (occurrence: None)
  Receive Date: 20110414
  Receipt Date: 20110411
  Transmission Date: 20111010
  Serious: Yes (Other)
  Sender: FDA-Public Use
  Company Number: US-GENZYME-FLUD-1001057

PATIENT
  Age: 48 Year

DRUGS (10)
  1. FLUDARA [Suspect]
     Indication: STEM CELL TRANSPLANT
  2. THYMOGLOBULIN [Suspect]
     Indication: MYELODYSPLASTIC SYNDROME
     Dosage: UNK
     Route: 065
  3. THYMOGLOBULIN [Suspect]
     Indication: STEM CELL TRANSPLANT
  4. METHOTREXATE [Concomitant]
     Indication: PROPHYLAXIS AGAINST GRAFT VERSUS HOST DISEASE
     Dosage: UNK
  5. BUSULFAN [Suspect]
     Indication: STEM CELL TRANSPLANT
  6. FLUDARA [Suspect]
     Indication: MYELODYSPLASTIC SYNDROME
     Dosage: 40 MG/M2, UNK
     Route: 065
  7. BUSULFAN [Suspect]
     Indication: MYELODYSPLASTIC SYNDROME
     Dosage: 130 MG/M2, UNK
     Route: 042
  8. DECITABINE [Suspect]
     Dosage: 20 MG/M2, QD X 5
     Route: 042
  9. DECITABINE [Suspect]
     Indication: MYELODYSPLASTIC SYNDROME
     Dosage: 20 MG/M2, QD X 5
     Route: 042
  10. TACROLIMUS [Concomitant]
     Indication: PROPHYLAXIS AGAINST GRAFT VERSUS HOST DISEASE
     Dosage: UNK

REACTIONS (2)
  - ACUTE GRAFT VERSUS HOST DISEASE IN SKIN [None]
  - CHRONIC GRAFT VERSUS HOST DISEASE [None]
